FAERS Safety Report 5226900-0 (Version None)
Quarter: 2007Q1

REPORT INFORMATION
  Report Type: 
  Country: None (occurrence: None)
  Receive Date: 20070130
  Receipt Date: 20070123
  Transmission Date: 20070707
  Serious: Yes (Hospitalization)
  Sender: FDA-Public Use
  Company Number: 2007S1000024

PATIENT
  Age: 76 Year
  Sex: Female
  Weight: 69.99 kg

DRUGS (6)
  1. SORIATANE [Suspect]
     Indication: PSORIASIS
     Dosage: PO
     Route: 048
  2. NOVOMIX 30 [Concomitant]
  3. NOVORAPID [Concomitant]
  4. AUGMENTIN '125' [Concomitant]
  5. LEVOTHYROXINE SODIUM [Concomitant]
  6. ATARAX [Concomitant]

REACTIONS (7)
  - CHOLESTASIS [None]
  - DIABETES MELLITUS INADEQUATE CONTROL [None]
  - LUNG DISORDER [None]
  - PRURITUS [None]
  - PSORIASIS [None]
  - RASH ERYTHEMATOUS [None]
  - RENAL FAILURE [None]
